FAERS Safety Report 14344075 (Version 3)
Quarter: 2018Q1

REPORT INFORMATION
  Report Type: Spontaneous
  Country: US (occurrence: US)
  Receive Date: 20180102
  Receipt Date: 20180326
  Transmission Date: 20180509
  Serious: Yes (Other)
  Sender: FDA-Public Use
  Company Number: US-PFIZER INC-2017527462

PATIENT
  Age: 70 Year
  Sex: Female
  Weight: 72.56 kg

DRUGS (2)
  1. IBRANCE [Suspect]
     Active Substance: PALBOCICLIB
     Indication: BREAST CANCER METASTATIC
     Dosage: 100 MG, UNK
     Route: 048
  2. IBRANCE [Suspect]
     Active Substance: PALBOCICLIB
     Dosage: 125 MG, CYCLIC (DAILY X 21DAYS, 7 DAYS OFF)
     Route: 048
     Dates: start: 20171114, end: 201712

REACTIONS (7)
  - Dry mouth [Unknown]
  - Hypertension [Recovered/Resolved]
  - Osteitis deformans [Unknown]
  - Pruritus [Unknown]
  - Dry eye [Unknown]
  - Drug administration error [Unknown]
  - Drug eruption [Unknown]
